FAERS Safety Report 15373783 (Version 2)
Quarter: 2018Q4

REPORT INFORMATION
  Report Type: Spontaneous
  Country: US (occurrence: US)
  Receive Date: 20180912
  Receipt Date: 20181009
  Transmission Date: 20190204
  Serious: No
  Sender: FDA-Public Use
  Company Number: US-PFIZER INC-2018368669

PATIENT
  Age: 86 Year
  Sex: Female
  Weight: 58.97 kg

DRUGS (1)
  1. LYRICA [Suspect]
     Active Substance: PREGABALIN
     Indication: NEUROPATHY PERIPHERAL
     Dosage: 100 MG CAPSULES IN THE MORNING, 100 MG CAPSULES AT NOON, AND 150 MG CAPSULES IN THE EVENING
     Route: 048
     Dates: start: 20180810

REACTIONS (1)
  - Somnolence [Recovered/Resolved]

NARRATIVE: CASE EVENT DATE: 2018
